FAERS Safety Report 4755409-3 (Version None)
Quarter: 2005Q3

REPORT INFORMATION
  Report Type: 
  Country: None (occurrence: None)
  Receive Date: 20050826
  Receipt Date: 20050826
  Transmission Date: 20060218
  Serious: Yes (Hospitalization)
  Sender: FDA-Public Use
  Company Number: None

PATIENT
  Age: 24 Year
  Sex: Female
  Weight: 57.6068 kg

DRUGS (2)
  1. MEPERIDINE 50 MG TAB [Suspect]
     Indication: ABDOMINAL PAIN UPPER
     Dosage: 50 MG QID OROPHARING
     Route: 049
     Dates: start: 20050401, end: 20050716
  2. MEPERIDINE 50 MG TAB [Suspect]
     Indication: PANCREATITIS
     Dosage: 50 MG QID OROPHARING
     Route: 049
     Dates: start: 20050401, end: 20050716

REACTIONS (2)
  - CONVULSION [None]
  - SIMPLE PARTIAL SEIZURES [None]
